FAERS Safety Report 7440631-8 (Version None)
Quarter: 2011Q2

REPORT INFORMATION
  Report Type: 
  Country: None (occurrence: None)
  Receive Date: 20110427
  Receipt Date: 20110419
  Transmission Date: 20111010
  Serious: Yes (Other)
  Sender: FDA-Public Use
  Company Number: B0715736A

PATIENT
  Age: 75 Year
  Sex: Male

DRUGS (5)
  1. CITALOPRAM [Suspect]
     Dosage: 20MG PER DAY
     Route: 065
  2. CIMETIDINE [Suspect]
     Indication: GASTRODUODENAL ULCER
     Route: 065
  3. QUETIAPINE [Concomitant]
     Dosage: 100MG TWICE PER DAY
     Route: 065
  4. DONEPEZIL [Concomitant]
     Dosage: 10MG PER DAY
     Route: 065
  5. TICLOPIDINE HCL [Concomitant]
     Dosage: 250MG TWICE PER DAY
     Route: 065

REACTIONS (11)
  - HYPERHIDROSIS [None]
  - DRUG INTERACTION [None]
  - RESTLESSNESS [None]
  - CEREBRAL ATROPHY [None]
  - BLOOD GLUCOSE INCREASED [None]
  - MYOCLONUS [None]
  - HYPERREFLEXIA [None]
  - ELECTROENCEPHALOGRAM ABNORMAL [None]
  - SEROTONIN SYNDROME [None]
  - HYPERTENSION [None]
  - TREMOR [None]
